FAERS Safety Report 4645458-8 (Version None)
Quarter: 2005Q2

REPORT INFORMATION
  Report Type: 
  Country: None (occurrence: None)
  Receive Date: 20050331
  Receipt Date: 20050214
  Transmission Date: 20051028
  Serious: Yes (Hospitalization)
  Sender: FDA-Public Use
  Company Number: 05P-163-0290464-00

PATIENT
  Age: 52 Year
  Sex: Female
  Weight: 113.5 kg

DRUGS (5)
  1. HUMIRA [Suspect]
     Indication: RHEUMATOID ARTHRITIS
     Dosage: 40 MG, 1 IN 2 WK, SUBCUTANEOUS
     Route: 058
     Dates: start: 20030501, end: 20050212
  2. IRBESARTAN [Concomitant]
  3. LANSOPRAZOLE [Concomitant]
  4. NEBULIZER TREATMENT [Concomitant]
  5. OXYCOCET [Concomitant]

REACTIONS (1)
  - BRONCHOPNEUMONIA [None]
